FAERS Safety Report 9934148 (Version 1)
Quarter: 2014Q1

REPORT INFORMATION
  Report Type: Spontaneous
  Country: US (occurrence: US)
  Receive Date: 20140228
  Receipt Date: 20140228
  Transmission Date: 20141002
  Serious: No
  Sender: FDA-Public Use
  Company Number: US-BAYER-2014-030974

PATIENT
  Sex: Male

DRUGS (2)
  1. STIVARGA [Suspect]
  2. SUTENT [Concomitant]

REACTIONS (1)
  - Vomiting [None]
